FAERS Safety Report 17242251 (Version 3)
Quarter: 2020Q1

REPORT INFORMATION
  Report Type: Report from Study
  Country: CN (occurrence: CN)
  Receive Date: 20200107
  Receipt Date: 20200225
  Transmission Date: 20200409
  Serious: Yes (Hospitalization)
  Sender: FDA-Public Use
  Company Number: NVSC2019CN079518

PATIENT
  Age: 47 Year
  Sex: Female
  Weight: 65 kg

DRUGS (12)
  1. COMPARATOR GOSERELIN [Suspect]
     Active Substance: GOSERELIN
     Indication: HUMAN EPIDERMAL GROWTH FACTOR RECEPTOR NEGATIVE
  2. LYSINE ACETYLSALICYLATE [Concomitant]
     Active Substance: ASPIRIN DL-LYSINE
     Indication: INFLAMMATION
     Dosage: UNK
     Route: 065
     Dates: start: 20191209, end: 20191214
  3. BICYCLOL [Concomitant]
     Active Substance: BICYCLOL
     Indication: ALANINE AMINOTRANSFERASE INCREASED
     Dosage: UNK
     Route: 065
     Dates: start: 20191220, end: 20191224
  4. BICYCLOL [Concomitant]
     Active Substance: BICYCLOL
     Indication: ALANINE AMINOTRANSFERASE INCREASED
     Dosage: UNK
     Route: 065
     Dates: start: 20191227
  5. FOSFOMYCIN SODIUM [Concomitant]
     Active Substance: FOSFOMYCIN SODIUM
     Indication: INFLAMMATION
     Dosage: UNK
     Route: 065
     Dates: start: 20191209, end: 20191214
  6. RIBOCICLIB. [Suspect]
     Active Substance: RIBOCICLIB
     Indication: HUMAN EPIDERMAL GROWTH FACTOR RECEPTOR NEGATIVE
  7. COMPARATOR GOSERELIN [Suspect]
     Active Substance: GOSERELIN
     Indication: BREAST CANCER
     Dosage: UNK
     Route: 065
     Dates: start: 20190703
  8. GLUTATHIONE [Concomitant]
     Active Substance: GLUTATHIONE
     Indication: GAMMA-GLUTAMYLTRANSFERASE INCREASED
     Dosage: UNK
     Route: 065
     Dates: start: 20191220, end: 20191224
  9. RIBOCICLIB. [Suspect]
     Active Substance: RIBOCICLIB
     Indication: BREAST CANCER
     Dosage: 600 MG, QD
     Route: 048
     Dates: start: 20190703
  10. INCADRONIC ACID DISODIUM [Concomitant]
     Indication: PROPHYLAXIS
     Dosage: UNK
     Route: 065
     Dates: start: 20191218, end: 20191218
  11. VIDARABINE [Concomitant]
     Active Substance: VIDARABINE
     Indication: INFLAMMATION
     Dosage: UNK
     Route: 065
     Dates: start: 20191209, end: 20191214
  12. GLUTATHIONE [Concomitant]
     Active Substance: GLUTATHIONE
     Indication: ALANINE AMINOTRANSFERASE INCREASED
     Dosage: UNK
     Route: 065
     Dates: start: 20191227

REACTIONS (1)
  - Pneumonia [Recovered/Resolved]

NARRATIVE: CASE EVENT DATE: 20191224
